FAERS Safety Report 8012833-3 (Version None)
Quarter: 2011Q4

REPORT INFORMATION
  Report Type: 
  Country: None (occurrence: None)
  Receive Date: 20111229
  Receipt Date: 20111220
  Transmission Date: 20120403
  Serious: Yes (Other)
  Sender: FDA-Public Use
  Company Number: US-MYLANLABS-2011S1025974

PATIENT
  Age: 35 Year
  Sex: Female

DRUGS (1)
  1. BUSPIRONE HCL [Suspect]
     Indication: ANXIETY
     Route: 048
     Dates: start: 20111211, end: 20111219

REACTIONS (2)
  - ABDOMINAL PAIN [None]
  - DIARRHOEA [None]
